FAERS Safety Report 15131864 (Version 1)
Quarter: 2018Q3

REPORT INFORMATION
  Report Type: Spontaneous
  Country: US (occurrence: US)
  Receive Date: 20180711
  Receipt Date: 20180711
  Transmission Date: 20181010
  Serious: Yes (Other)
  Sender: FDA-Public Use
  Company Number: US-BAUSCH-BL-2018-018468

PATIENT
  Sex: Female

DRUGS (2)
  1. APRISO [Suspect]
     Active Substance: MESALAMINE
     Indication: COLITIS ULCERATIVE
     Dosage: 4 CAPSULES DAILY 3 MONTHS AGO
     Route: 065
     Dates: start: 201806, end: 201806
  2. APRISO [Suspect]
     Active Substance: MESALAMINE
     Dosage: CUT THE DOSE TO 2 CAPSULES A DAY
     Route: 065
     Dates: start: 201806, end: 201807

REACTIONS (5)
  - Colitis ulcerative [Not Recovered/Not Resolved]
  - Drug dose omission [Not Recovered/Not Resolved]
  - Insurance issue [Not Recovered/Not Resolved]
  - Incorrect dose administered [Recovered/Resolved]
  - Symptom recurrence [Not Recovered/Not Resolved]

NARRATIVE: CASE EVENT DATE: 2018
